FAERS Safety Report 15321476 (Version 1)
Quarter: 2018Q3

REPORT INFORMATION
  Report Type: Spontaneous
  Country: NL (occurrence: NL)
  Receive Date: 20180827
  Receipt Date: 20180827
  Transmission Date: 20181010
  Serious: Yes (Hospitalization, Other)
  Sender: FDA-Public Use
  Company Number: NL-SA-2018SA231352

PATIENT
  Age: 41 Year
  Sex: Female
  Weight: 110 kg

DRUGS (3)
  1. THYRAX DUO [Concomitant]
     Active Substance: LEVOTHYROXINE SODIUM
     Dosage: 0.025 MG
  2. CYTOMEL [Concomitant]
     Active Substance: LIOTHYRONINE SODIUM
     Dosage: 25 UG, TABLET
  3. LEMTRADA [Suspect]
     Active Substance: ALEMTUZUMAB
     Indication: MULTIPLE SCLEROSIS
     Dosage: USUAL DOSE IS INFUSED OVER THREE DAYS
     Route: 041
     Dates: start: 201710, end: 201710

REACTIONS (2)
  - Loss of consciousness [Recovered/Resolved]
  - Blindness [Not Recovered/Not Resolved]

NARRATIVE: CASE EVENT DATE: 20171020
